FAERS Safety Report 16124207 (Version 1)
Quarter: 2019Q2

REPORT INFORMATION
  Report Type: Spontaneous
  Country: US (occurrence: US)
  Receive Date: 20190327
  Receipt Date: 20190327
  Transmission Date: 20190711
  Serious: Yes (Other)
  Sender: FDA-Public Use
  Company Number: US-ANIPHARMA-2018-US-013036

PATIENT
  Age: 61 Year
  Sex: Male

DRUGS (9)
  1. BICALUTAMIDE. [Suspect]
     Active Substance: BICALUTAMIDE
     Indication: HORMONE-REFRACTORY PROSTATE CANCER
     Route: 048
  2. LUPRON [Suspect]
     Active Substance: LEUPROLIDE ACETATE
  3. CABAZITAXEL [Suspect]
     Active Substance: CABAZITAXEL
  4. ABIRATERONE. [Suspect]
     Active Substance: ABIRATERONE ACETATE
  5. DOCETAXEL. [Suspect]
     Active Substance: DOCETAXEL
  6. ENZALUTAMIDE [Suspect]
     Active Substance: ENZALUTAMIDE
  7. PREDNISONE. [Suspect]
     Active Substance: PREDNISONE
  8. CARBOPLATIN. [Suspect]
     Active Substance: CARBOPLATIN
  9. CABAZITAXEL [Suspect]
     Active Substance: CABAZITAXEL

REACTIONS (1)
  - Disease progression [Unknown]
